FAERS Safety Report 10793048 (Version 1)
Quarter: 2015Q1

REPORT INFORMATION
  Report Type: Report from Study
  Country: DE (occurrence: FR)
  Receive Date: 20150213
  Receipt Date: 20150213
  Transmission Date: 20150721
  Serious: Yes (Death)
  Sender: FDA-Public Use
  Company Number: DE-ACTELION-A-NJ2015-112802

PATIENT
  Age: 71 Year
  Sex: Male

DRUGS (1)
  1. VENTAVIS [Suspect]
     Active Substance: ILOPROST
     Indication: PULMONARY HYPERTENSION
     Dosage: 5 MCG, 5 TO 6 SESSIONS PER DAY
     Route: 055
     Dates: start: 20130416, end: 20150205

REACTIONS (1)
  - Death [Fatal]

NARRATIVE: CASE EVENT DATE: 20150205
